FAERS Safety Report 9009824 (Version 4)
Quarter: 2018Q1

REPORT INFORMATION
  Report Type: Spontaneous
  Country: US (occurrence: US)
  Receive Date: 20130110
  Receipt Date: 20180216
  Transmission Date: 20180509
  Serious: Yes (Hospitalization, Other)
  Sender: FDA-Public Use
  Company Number: US-009507513-1301USA002415

PATIENT
  Sex: Female

DRUGS (2)
  1. FOSAMAX [Suspect]
     Active Substance: ALENDRONATE SODIUM
     Indication: OSTEOPOROSIS
     Dosage: 70 MG, QW
     Route: 048
     Dates: start: 2000, end: 200705
  2. BONIVA [Suspect]
     Active Substance: IBANDRONATE SODIUM
     Indication: OSTEOPOROSIS
     Dosage: 150 MG, UNK
     Route: 048
     Dates: start: 200602, end: 201201

REACTIONS (23)
  - Cerebellar infarction [Unknown]
  - Fracture [Unknown]
  - Fall [Unknown]
  - Fall [Unknown]
  - Accident [Unknown]
  - Hyperlipidaemia [Unknown]
  - Headache [Unknown]
  - Patellofemoral pain syndrome [Unknown]
  - Fall [Unknown]
  - Fall [Unknown]
  - Ligament sprain [Unknown]
  - Hypertension [Unknown]
  - Memory impairment [Unknown]
  - Haemorrhoids [Unknown]
  - Blood cholesterol increased [Unknown]
  - Cerebral infarction [Unknown]
  - Aortic arteriosclerosis [Unknown]
  - Balance disorder [Unknown]
  - Cognitive disorder [Unknown]
  - Femur fracture [Recovering/Resolving]
  - Tooth disorder [Unknown]
  - Orthostatic hypotension [Recovered/Resolved]
  - Fracture [Unknown]

NARRATIVE: CASE EVENT DATE: 200006
